FAERS Safety Report 11865975 (Version 1)
Quarter: 2015Q4

REPORT INFORMATION
  Report Type: Report from Study
  Country: IL (occurrence: IL)
  Receive Date: 20151223
  Receipt Date: 20151223
  Transmission Date: 20160305
  Serious: Yes (Hospitalization)
  Sender: FDA-Public Use
  Company Number: IL-KADMON PHARMACEUTICALS, LLC-KAD201512-004549

PATIENT
  Sex: Female

DRUGS (9)
  1. CYCLOSPORINE. [Concomitant]
     Active Substance: CYCLOSPORINE
  2. RIBAVIRIN. [Suspect]
     Active Substance: RIBAVIRIN
     Indication: HEPATITIS C
     Dosage: TABLET
     Route: 048
     Dates: start: 20150615, end: 20150703
  3. VIEKIRAX [Suspect]
     Active Substance: OMBITASVIR\PARITAPREVIR\RITONAVIR
     Indication: HEPATITIS C
     Dosage: TABLET
     Route: 048
     Dates: start: 20150615, end: 20151130
  4. ZANIDEX [Concomitant]
     Active Substance: RANITIDINE HYDROCHLORIDE
  5. ENALADEX [Concomitant]
     Active Substance: ENALAPRIL MALEATE
  6. EXVIERA [Suspect]
     Active Substance: DASABUVIR
     Indication: HEPATITIS C
     Dosage: TABLET
     Route: 048
     Dates: start: 20150615, end: 20151130
  7. CELLCEPT [Concomitant]
     Active Substance: MYCOPHENOLATE MOFETIL\MYCOPHENOLATE MOFETIL HYDROCHLORIDE
  8. CARDILOC [Concomitant]
     Active Substance: BISOPROLOL FUMARATE
  9. INSULIN [Concomitant]
     Active Substance: INSULIN NOS

REACTIONS (6)
  - Dysuria [Unknown]
  - Cough [Unknown]
  - Abdominal pain [Unknown]
  - Vomiting [Unknown]
  - Asthenia [Unknown]
  - Pruritus [Unknown]
